FAERS Safety Report 26047607 (Version 1)
Quarter: 2025Q4

REPORT INFORMATION
  Report Type: Spontaneous
  Country: US (occurrence: US)
  Receive Date: 20251114
  Receipt Date: 20251114
  Transmission Date: 20260118
  Serious: Yes (Hospitalization)
  Sender: GALPHARM INTERNATIONAL
  Company Number: US-MLMSERVICE-20251030-PI691376-00029-2

PATIENT
  Age: 5 Year

DRUGS (1)
  1. ACETAMINOPHEN [Suspect]
     Active Substance: ACETAMINOPHEN
     Indication: Product used for unknown indication
     Dosage: UNKNOWN QUANTITY
     Route: 048

REACTIONS (2)
  - Intentional overdose [Recovered/Resolved]
  - Gastrointestinal disorder [Recovered/Resolved]
